FAERS Safety Report 9085355 (Version 1)
Quarter: 2013Q1

REPORT INFORMATION
  Report Type: Report from Study
  Country: US (occurrence: US)
  Receive Date: 20130131
  Receipt Date: 20130131
  Transmission Date: 20140127
  Serious: Yes (Hospitalization)
  Sender: FDA-Public Use
  Company Number: US-ABBOTT-12P-163-0990266-00

PATIENT
  Age: 51 None
  Sex: Female
  Weight: 81.72 kg

DRUGS (5)
  1. HUMIRA [Suspect]
     Indication: CROHN^S DISEASE
     Dates: start: 20100214, end: 201204
  2. HUMIRA [Suspect]
     Indication: RHEUMATOID ARTHRITIS
     Dates: start: 20120420
  3. OMEPRAZOLE [Concomitant]
     Indication: GASTRIC DISORDER
  4. GABAPENTIN [Concomitant]
     Indication: PRODUCT USED FOR UNKNOWN INDICATION
  5. ALLERGY MEDICATION [Concomitant]
     Indication: SEASONAL ALLERGY

REACTIONS (6)
  - Thrombosis [Recovering/Resolving]
  - Fatigue [Unknown]
  - Drug dose omission [Unknown]
  - Device malfunction [Unknown]
  - Dyspnoea [Not Recovered/Not Resolved]
  - Chronic obstructive pulmonary disease [Not Recovered/Not Resolved]
